FAERS Safety Report 23127750 (Version 5)
Quarter: 2024Q2

REPORT INFORMATION
  Report Type: Spontaneous
  Country: US (occurrence: US)
  Receive Date: 20231031
  Receipt Date: 20240523
  Transmission Date: 20240716
  Serious: No
  Sender: FDA-Public Use
  Company Number: US-BIOGEN-2023BI01233401

PATIENT
  Sex: Female

DRUGS (23)
  1. AVONEX [Suspect]
     Active Substance: INTERFERON BETA-1A
     Indication: Multiple sclerosis
     Dosage: INJECT 30 MCG (1 INJECTOR) INTRAMUSCULARLY ONCE WEEKLY
     Route: 050
     Dates: start: 20040501
  2. AVONEX [Suspect]
     Active Substance: INTERFERON BETA-1A
  3. AVONEX [Suspect]
     Active Substance: INTERFERON BETA-1A
  4. AVONEX [Suspect]
     Active Substance: INTERFERON BETA-1A
  5. AVONEX [Suspect]
     Active Substance: INTERFERON BETA-1A
  6. AVONEX [Suspect]
     Active Substance: INTERFERON BETA-1A
  7. AVONEX [Suspect]
     Active Substance: INTERFERON BETA-1A
  8. AVONEX [Suspect]
     Active Substance: INTERFERON BETA-1A
  9. AVONEX [Suspect]
     Active Substance: INTERFERON BETA-1A
  10. AVONEX [Suspect]
     Active Substance: INTERFERON BETA-1A
  11. AVONEX [Suspect]
     Active Substance: INTERFERON BETA-1A
  12. AVONEX [Suspect]
     Active Substance: INTERFERON BETA-1A
  13. AVONEX [Suspect]
     Active Substance: INTERFERON BETA-1A
  14. PROLIA [Concomitant]
     Active Substance: DENOSUMAB
     Dosage: 60MG/ML PFS
     Route: 050
  15. SYNTHROID [Concomitant]
     Active Substance: LEVOTHYROXINE SODIUM
     Route: 050
  16. CLONAZEPAM [Concomitant]
     Active Substance: CLONAZEPAM
     Route: 050
  17. VALSARTAN [Concomitant]
     Active Substance: VALSARTAN
     Route: 050
  18. POTASSIUM CHLORIDE [Concomitant]
     Active Substance: POTASSIUM CHLORIDE
     Route: 050
  19. ESCITALOPRAM OXALATE [Concomitant]
     Active Substance: ESCITALOPRAM OXALATE
     Route: 050
  20. VITAMIN D3 [Concomitant]
     Active Substance: CHOLECALCIFEROL
     Route: 050
  21. VITAMIN D [Concomitant]
     Active Substance: VITAMIN D NOS
     Route: 050
  22. ASPIRIN [Concomitant]
     Active Substance: ASPIRIN
     Route: 050
  23. ROSUVASTATIN CALCIUM [Concomitant]
     Active Substance: ROSUVASTATIN CALCIUM
     Route: 050

REACTIONS (4)
  - Product dose omission in error [Unknown]
  - Accident [Recovered/Resolved]
  - Influenza like illness [Unknown]
  - Pain [Unknown]
